FAERS Safety Report 14939417 (Version 1)
Quarter: 2018Q2

REPORT INFORMATION
  Report Type: Spontaneous
  Country: US (occurrence: US)
  Receive Date: 20180525
  Receipt Date: 20180525
  Transmission Date: 20180711
  Serious: No
  Sender: FDA-Public Use
  Company Number: US-PFIZER INC-2018211223

PATIENT
  Age: 69 Year
  Sex: Male

DRUGS (1)
  1. SUTENT [Suspect]
     Active Substance: SUNITINIB MALATE
     Dosage: 50 MG, CYCLIC (1QD X 14 DAYS THEN 7 DAYS OFF)
     Dates: start: 20170329

REACTIONS (8)
  - Product use issue [Unknown]
  - Erythema [Unknown]
  - Diarrhoea [Unknown]
  - Insomnia [Unknown]
  - Asthenia [Unknown]
  - Dry skin [Unknown]
  - Headache [Unknown]
  - Ageusia [Unknown]

NARRATIVE: CASE EVENT DATE: 20170329
